FAERS Safety Report 9824904 (Version 1)
Quarter: 2014Q1

REPORT INFORMATION
  Report Type: Report from Study
  Country: CA (occurrence: CA)
  Receive Date: 20140117
  Receipt Date: 20140117
  Transmission Date: 20141002
  Serious: Yes (Death)
  Sender: FDA-Public Use
  Company Number: CA-ROCHE-1334343

PATIENT
  Age: 77 Year
  Sex: Male

DRUGS (8)
  1. RITUXAN [Suspect]
     Indication: NON-HODGKIN^S LYMPHOMA
     Route: 042
     Dates: start: 20131212, end: 20131212
  2. ASA [Concomitant]
  3. STEMETIL [Concomitant]
  4. RANITIDINE [Concomitant]
  5. CRESTOR [Concomitant]
  6. MIRTAZAPINE [Concomitant]
  7. HYDROMORPHONE [Concomitant]
  8. CLARITIN [Concomitant]

REACTIONS (1)
  - Death [Fatal]
